FAERS Safety Report 8988512 (Version 1)
Quarter: 2012Q4

REPORT INFORMATION
  Report Type: Spontaneous
  Country: US (occurrence: None)
  Receive Date: 20121224
  Receipt Date: 20121224
  Transmission Date: 20130627
  Serious: No
  Sender: FDA-Public Use
  Company Number: None

PATIENT
  Age: 56 Year
  Sex: Female
  Weight: 91.63 kg

DRUGS (1)
  1. CYANOCOBALAMIN [Suspect]
     Dosage: 1ML MONTHLY IM
     Route: 030
     Dates: start: 20121212, end: 20121212

REACTIONS (3)
  - Injection site rash [None]
  - Injection site vesicles [None]
  - Injection site pruritus [None]
